FAERS Safety Report 17803904 (Version 1)
Quarter: 2020Q2

REPORT INFORMATION
  Report Type: Spontaneous
  Country: US (occurrence: US)
  Receive Date: 20200519
  Receipt Date: 20200519
  Transmission Date: 20200714
  Serious: Yes (Other)
  Sender: FDA-Public Use
  Company Number: US-AMGEN-USASP2020079619

PATIENT
  Age: 89 Year
  Sex: Female
  Weight: 57.14 kg

DRUGS (2)
  1. NPLATE [Suspect]
     Active Substance: ROMIPLOSTIM
     Indication: IMMUNE THROMBOCYTOPENIA
     Dosage: UNK
     Route: 065
     Dates: start: 2015
  2. NPLATE [Suspect]
     Active Substance: ROMIPLOSTIM
     Dosage: 125 MICROGRAM
     Route: 065

REACTIONS (2)
  - Rectal haemorrhage [Unknown]
  - Red blood cell count decreased [Unknown]

NARRATIVE: CASE EVENT DATE: 202004
